FAERS Safety Report 9136876 (Version 1)
Quarter: 2013Q1

REPORT INFORMATION
  Report Type: Spontaneous
  Country: US (occurrence: US)
  Receive Date: 20130304
  Receipt Date: 20130304
  Transmission Date: 20140127
  Serious: No
  Sender: FDA-Public Use
  Company Number: US-ABBOTT-12P-163-0999761-00

PATIENT
  Sex: Male
  Weight: 124.4 kg

DRUGS (4)
  1. ANDROGEL [Suspect]
     Indication: BLOOD TESTOSTERONE DECREASED
     Dosage: 1 PACKET DAILY
  2. ANDROGEL [Suspect]
     Dosage: 2 PACKETS DAILY
  3. DOXEPIN [Concomitant]
     Indication: DEPRESSION
  4. NEFAZODONE [Concomitant]
     Indication: DEPRESSION

REACTIONS (4)
  - Malabsorption [Not Recovered/Not Resolved]
  - Poor quality sleep [Not Recovered/Not Resolved]
  - Insomnia [Not Recovered/Not Resolved]
  - Blood testosterone decreased [Not Recovered/Not Resolved]
